FAERS Safety Report 9560113 (Version 1)
Quarter: 2013Q3

REPORT INFORMATION
  Report Type: Spontaneous
  Country: FR (occurrence: FR)
  Receive Date: 20130927
  Receipt Date: 20130927
  Transmission Date: 20140515
  Serious: Yes (Hospitalization)
  Sender: FDA-Public Use
  Company Number: FR-SANOFI-AVENTIS-2013SA093603

PATIENT
  Age: 79 Year
  Sex: Male

DRUGS (5)
  1. LASILIX [Suspect]
     Indication: OEDEMA PERIPHERAL
     Route: 048
     Dates: start: 201305, end: 20130522
  2. EPITOMAX [Suspect]
     Indication: EPILEPSY
     Route: 048
     Dates: start: 20130513, end: 20130522
  3. URBANYL [Concomitant]
     Route: 048
  4. DEPAKINE CHRONO [Concomitant]
     Dosage: 500 MG ON MORNING AND 1000 MG IN EVENING
     Route: 048
     Dates: start: 201302
  5. ZYMAD [Concomitant]
     Dosage: DOSE:1 UNIT(S)
     Route: 048
     Dates: end: 20130522

REACTIONS (2)
  - Tremor [Recovered/Resolved]
  - Pyrexia [Recovered/Resolved]
